FAERS Safety Report 25109817 (Version 1)
Quarter: 2025Q1

REPORT INFORMATION
  Report Type: Spontaneous
  Country: DE (occurrence: DE)
  Receive Date: 20250324
  Receipt Date: 20250324
  Transmission Date: 20250409
  Serious: Yes (Hospitalization, Other)
  Sender: ALKEM
  Company Number: DE-ALKEM LABORATORIES LIMITED-DE-ALKEM-2024-05709

PATIENT
  Sex: Female

DRUGS (2)
  1. QUETIAPINE FUMARATE [Suspect]
     Active Substance: QUETIAPINE FUMARATE
     Indication: Mental disorder
     Route: 065
  2. QUETIAPINE FUMARATE [Suspect]
     Active Substance: QUETIAPINE FUMARATE
     Indication: Behaviour disorder

REACTIONS (3)
  - Suicidal ideation [Unknown]
  - Antipsychotic drug level below therapeutic [Unknown]
  - Off label use [Unknown]
